FAERS Safety Report 7221451-6 (Version None)
Quarter: 2011Q1

REPORT INFORMATION
  Report Type: 
  Country: None (occurrence: None)
  Receive Date: 20110103
  Receipt Date: 20101217
  Transmission Date: 20110831
  Serious: Yes (Other)
  Sender: FDA-Public Use
  Company Number: AUR-APL-2010-03135

PATIENT
  Age: 68 Year
  Sex: Female

DRUGS (9)
  1. PRAVASTATIN [Concomitant]
  2. GABAPENTIN [Concomitant]
  3. SOTALOL [Concomitant]
  4. FUROSEMIDE [Concomitant]
  5. GLICLAZIDE [Concomitant]
  6. ASPIRIN [Concomitant]
  7. METFORMIN [Concomitant]
  8. AMLODIPINE [Suspect]
     Indication: HYPERTENSION
  9. RAMIPRIL [Suspect]
     Indication: HYPERTENSION

REACTIONS (8)
  - CEREBRAL INFARCTION [None]
  - CAROTID BRUIT [None]
  - AREFLEXIA [None]
  - TRANSIENT ISCHAEMIC ATTACK [None]
  - PARTIAL SEIZURES [None]
  - CAROTID ARTERY OCCLUSION [None]
  - DYSKINESIA [None]
  - PARAESTHESIA [None]
